FAERS Safety Report 6706130-3 (Version None)
Quarter: 2010Q2

REPORT INFORMATION
  Report Type: 
  Country: None (occurrence: None)
  Receive Date: 20100430
  Receipt Date: 20100430
  Transmission Date: 20101027
  Serious: Yes (Hospitalization)
  Sender: FDA-Public Use
  Company Number: None

PATIENT
  Sex: Female
  Weight: 109.2 kg

DRUGS (1)
  1. CYTARABINE [Suspect]
     Dosage: 38160 MG
     Dates: start: 20091111, end: 20091219

REACTIONS (11)
  - BACK PAIN [None]
  - CHILLS [None]
  - HAEMOGLOBIN DECREASED [None]
  - NASAL CONGESTION [None]
  - NAUSEA [None]
  - NEUTROPENIA [None]
  - OROPHARYNGEAL PAIN [None]
  - PLATELET COUNT DECREASED [None]
  - PYREXIA [None]
  - SNEEZING [None]
  - WHITE BLOOD CELL COUNT DECREASED [None]
